FAERS Safety Report 16267473 (Version 1)
Quarter: 2019Q2

REPORT INFORMATION
  Report Type: Spontaneous
  Country: JP (occurrence: JP)
  Receive Date: 20190503
  Receipt Date: 20190503
  Transmission Date: 20190711
  Serious: Yes (Other)
  Sender: FDA-Public Use
  Company Number: JP-CONCORDIA PHARMACEUTICALS INC.-GSH201904-001279

PATIENT
  Age: 41 Year
  Sex: Female
  Weight: 60 kg

DRUGS (8)
  1. PLAQUENIL [Suspect]
     Active Substance: HYDROXYCHLOROQUINE SULFATE
     Indication: CUTANEOUS LUPUS ERYTHEMATOSUS
     Route: 048
  2. CARBOCISTEINE [Concomitant]
     Active Substance: CARBOCYSTEINE
     Indication: PRODUCT USED FOR UNKNOWN INDICATION
  3. FAMCICLOVIR. [Suspect]
     Active Substance: FAMCICLOVIR
     Indication: ORAL HERPES
     Route: 065
  4. PROTOPIC [Concomitant]
     Active Substance: TACROLIMUS
     Indication: PRODUCT USED FOR UNKNOWN INDICATION
  5. ANTEBATE [Concomitant]
     Active Substance: BETAMETHASONE DIPROPIONATE
     Indication: PRODUCT USED FOR UNKNOWN INDICATION
  6. HIRUDOID [Concomitant]
     Active Substance: GLYCOSAMINOGLYCANS
     Indication: PRODUCT USED FOR UNKNOWN INDICATION
  7. PLAQUENIL [Suspect]
     Active Substance: HYDROXYCHLOROQUINE SULFATE
     Route: 048
  8. MONTELUKAST [Concomitant]
     Active Substance: MONTELUKAST SODIUM
     Indication: PRODUCT USED FOR UNKNOWN INDICATION

REACTIONS (5)
  - Altered state of consciousness [Recovered/Resolved]
  - Abdominal pain [Recovered/Resolved]
  - Altered state of consciousness [Recovered/Resolved]
  - Abdominal pain [Recovered/Resolved]
  - Facial bones fracture [Recovered/Resolved]

NARRATIVE: CASE EVENT DATE: 201702
